FAERS Safety Report 20164277 (Version 2)
Quarter: 2021Q4

REPORT INFORMATION
  Report Type: Spontaneous
  Country: HR (occurrence: HR)
  Receive Date: 20211209
  Receipt Date: 20211220
  Transmission Date: 20220303
  Serious: Yes (Death, Other)
  Sender: FDA-Public Use
  Company Number: HR-CELLTRION INC.-2021HR016427

PATIENT

DRUGS (5)
  1. TRASTUZUMAB [Suspect]
     Active Substance: TRASTUZUMAB
     Indication: HER2 negative breast cancer
     Dosage: 6 CYCLES
     Route: 042
     Dates: start: 20170901
  2. TRASTUZUMAB [Suspect]
     Active Substance: TRASTUZUMAB
     Dosage: 6 CYCLES
     Route: 042
     Dates: start: 20190802
  3. ADO-TRASTUZUMAB EMTANSINE [Suspect]
     Active Substance: ADO-TRASTUZUMAB EMTANSINE
     Indication: HER2 negative breast cancer
     Dosage: 4 CYCLES
     Route: 042
     Dates: start: 20190828, end: 20200129
  4. DOCETAXEL [Suspect]
     Active Substance: DOCETAXEL
     Indication: HER2 negative breast cancer
     Route: 065
  5. PERTUZUMAB [Suspect]
     Active Substance: PERTUZUMAB
     Indication: HER2 negative breast cancer
     Route: 042

REACTIONS (2)
  - Death [Fatal]
  - Thrombocytopenia [Unknown]

NARRATIVE: CASE EVENT DATE: 20200305
